FAERS Safety Report 6918904-4 (Version None)
Quarter: 2010Q3

REPORT INFORMATION
  Report Type: 
  Country: None (occurrence: None)
  Receive Date: 20100811
  Receipt Date: 20100803
  Transmission Date: 20110219
  Serious: Yes (Hospitalization)
  Sender: FDA-Public Use
  Company Number: AU-ELI_LILLY_AND_COMPANY-AU201006007357

PATIENT
  Sex: Female

DRUGS (18)
  1. GEMCITABINE HCL [Suspect]
     Indication: PANCREATIC CARCINOMA
     Dosage: 1500 MG, UNKNOWN
     Route: 042
     Dates: start: 20091113, end: 20100625
  2. GEMCITABINE HCL [Suspect]
     Dosage: 1500 MG, UNK
     Route: 042
     Dates: start: 20100702
  3. PACLITAXEL [Suspect]
     Indication: PANCREATIC CARCINOMA
     Dosage: 187 MG, UNK
     Route: 042
     Dates: start: 20091113, end: 20100625
  4. PACLITAXEL [Suspect]
     Dosage: 187 MG, UNK
     Route: 042
     Dates: start: 20100702
  5. TEMAZEPAM [Concomitant]
     Indication: INSOMNIA
     Dosage: UNK, UNKNOWN
     Route: 048
     Dates: start: 20090801
  6. ACTRAPID /00030501/ [Concomitant]
     Indication: DIABETES MELLITUS
     Dosage: UNK, UNKNOWN
     Route: 058
     Dates: start: 20090921
  7. NOVOMIX /01475801/ [Concomitant]
     Indication: DIABETES MELLITUS
     Dosage: UNK, UNKNOWN
     Route: 058
     Dates: start: 20090921
  8. METOCLOPRAMIDE [Concomitant]
     Indication: PROPHYLAXIS
     Dosage: UNK, UNKNOWN
     Route: 048
     Dates: start: 20091113
  9. PARACETAMOL [Concomitant]
     Indication: PAIN
     Dosage: UNK, UNKNOWN
     Route: 048
     Dates: start: 20091113
  10. LOPERAMIDE [Concomitant]
     Indication: DIARRHOEA
     Dosage: UNK, UNKNOWN
     Route: 048
     Dates: start: 20091125
  11. MAGNESIUM [Concomitant]
     Indication: GASTROOESOPHAGEAL REFLUX DISEASE
     Dosage: UNK, UNKNOWN
     Route: 048
     Dates: start: 20091120
  12. ESOMEPRAZOLE MAGNESIUM [Concomitant]
     Indication: GASTROOESOPHAGEAL REFLUX DISEASE
     Dosage: UNK, UNKNOWN
     Route: 048
     Dates: start: 20091223
  13. PANCRELIPASE [Concomitant]
     Indication: MALABSORPTION
     Dosage: UNK, UNKNOWN
     Route: 048
     Dates: start: 20100226
  14. CALCIUM + VITAMIN D [Concomitant]
     Indication: VITAMIN SUPPLEMENTATION
     Dosage: UNK, UNKNOWN
     Route: 048
  15. NORMAL SALINE [Concomitant]
     Dosage: UNK, UNKNOWN
     Route: 042
     Dates: start: 20091113
  16. PANTOPRAZOLE [Concomitant]
     Dosage: UNK, UNKNOWN
     Route: 065
  17. ONDANSETRON [Concomitant]
     Dosage: UNK, UNKNOWN
     Route: 065
  18. ALUMINUM HYDROXIDE GEL [Concomitant]
     Dosage: UNK, UNKNOWN
     Route: 065

REACTIONS (1)
  - BACTERIAL SEPSIS [None]
